FAERS Safety Report 4812499-7 (Version None)
Quarter: 2005Q4

REPORT INFORMATION
  Report Type: 
  Country: None (occurrence: None)
  Receive Date: 20051028
  Receipt Date: 20050208
  Transmission Date: 20060501
  Serious: No
  Sender: FDA-Public Use
  Company Number: US-GLAXOSMITHKLINE-A0544506A

PATIENT
  Age: 80 Year
  Sex: Male
  Weight: 82.3 kg

DRUGS (9)
  1. ADVAIR DISKUS 100/50 [Suspect]
     Indication: ASTHMA
     Route: 055
     Dates: start: 20050101
  2. PROTONIX [Concomitant]
  3. ATACAND [Concomitant]
  4. FLOMAX [Concomitant]
  5. ZOCOR [Concomitant]
  6. AMBIEN [Concomitant]
  7. ACYCLOVIR [Concomitant]
  8. BEXTRA [Concomitant]
  9. UNKNOWN MEDICATION [Concomitant]

REACTIONS (1)
  - MOUTH ULCERATION [None]
